FAERS Safety Report 4321350-3 (Version None)
Quarter: 2004Q1

REPORT INFORMATION
  Report Type: 
  Country: None (occurrence: None)
  Receive Date: 20040322
  Receipt Date: 20030331
  Transmission Date: 20041129
  Serious: Yes (Other)
  Sender: FDA-Public Use
  Company Number: US-BRISTOL-MYERS SQUIBB COMPANY-12227237

PATIENT
  Age: 32 Year
  Sex: Female
  Weight: 45 kg

DRUGS (1)
  1. VAGISTAT-1 [Suspect]
     Indication: VAGINAL MYCOSIS
     Route: 067
     Dates: start: 20030326, end: 20030326

REACTIONS (8)
  - BLISTER [None]
  - DERMATITIS EXFOLIATIVE [None]
  - DYSURIA [None]
  - MUSCLE CRAMP [None]
  - PYREXIA [None]
  - VAGINAL BURNING SENSATION [None]
  - VAGINAL PAIN [None]
  - VULVOVAGINAL DISCOMFORT [None]
